FAERS Safety Report 7771000-9 (Version None)
Quarter: 2011Q3

REPORT INFORMATION
  Report Type: 
  Country: None (occurrence: None)
  Receive Date: 20110922
  Receipt Date: 20100823
  Transmission Date: 20111222
  Serious: Yes (Other)
  Sender: FDA-Public Use
  Company Number: US-ASTRAZENECA-2010SE39492

PATIENT
  Age: 50 Year
  Sex: Female
  Weight: 76.2 kg

DRUGS (5)
  1. CLONAZEPAM [Concomitant]
  2. SEROQUEL XR [Suspect]
     Indication: BIPOLAR I DISORDER
     Route: 048
     Dates: start: 20040101, end: 20100201
  3. SERTRALINE HYDROCHLORIDE [Concomitant]
  4. HYDROXYZ PAM [Concomitant]
  5. EFFEXOR [Concomitant]

REACTIONS (7)
  - INSOMNIA [None]
  - ACTIVITIES OF DAILY LIVING IMPAIRED [None]
  - AGORAPHOBIA [None]
  - DRUG DOSE OMISSION [None]
  - SUICIDAL IDEATION [None]
  - MOOD SWINGS [None]
  - DEPRESSION [None]
